FAERS Safety Report 5001479-7 (Version None)
Quarter: 2006Q2

REPORT INFORMATION
  Report Type: 
  Country: None (occurrence: None)
  Receive Date: 20060512
  Receipt Date: 20050906
  Transmission Date: 20061013
  Serious: Yes (Other)
  Sender: FDA-Public Use
  Company Number: US-MERCK-0509USA00914

PATIENT
  Age: 65 Year
  Sex: Male
  Weight: 84 kg

DRUGS (3)
  1. VIOXX [Suspect]
     Indication: INFLAMMATION
     Route: 048
     Dates: start: 20040401, end: 20040612
  2. VIOXX [Suspect]
     Indication: PAIN
     Route: 048
     Dates: start: 20040401, end: 20040612
  3. ASPIRIN [Concomitant]
     Route: 065

REACTIONS (1)
  - CEREBROVASCULAR ACCIDENT [None]
